FAERS Safety Report 4296843-8 (Version None)
Quarter: 2004Q1

REPORT INFORMATION
  Report Type: 
  Country: None (occurrence: None)
  Receive Date: 20040126
  Receipt Date: 20030919
  Transmission Date: 20041129
  Serious: No
  Sender: FDA-Public Use
  Company Number: USA030639965

PATIENT
  Age: 55 Year
  Sex: Female
  Weight: 43 kg

DRUGS (2)
  1. STRATTERA [Suspect]
     Dosage: 72 MG/DAY
     Dates: start: 20030501
  2. LEXAPRO [Concomitant]

REACTIONS (7)
  - ABDOMINAL DISTENSION [None]
  - CHROMATURIA [None]
  - DECREASED APPETITE [None]
  - FATIGUE [None]
  - FLATULENCE [None]
  - LIBIDO INCREASED [None]
  - THROAT IRRITATION [None]
